FAERS Safety Report 20510352 (Version 1)
Quarter: 2022Q1

REPORT INFORMATION
  Report Type: Spontaneous
  Country: US (occurrence: US)
  Receive Date: 20220224
  Receipt Date: 20220224
  Transmission Date: 20220423
  Serious: No
  Sender: FDA-Public Use
  Company Number: US-RECORDATI RARE DISEASE INC.-2021003273

PATIENT

DRUGS (2)
  1. CYSTADANE [Suspect]
     Active Substance: BETAINE
     Indication: Homocystinuria
     Dosage: 4 GRAM, BID
     Route: 048
     Dates: start: 1998
  2. CYSTADANE [Suspect]
     Active Substance: BETAINE
     Indication: Hyperglycinaemia

REACTIONS (1)
  - Oral pain [Recovering/Resolving]

NARRATIVE: CASE EVENT DATE: 20210601
